FAERS Safety Report 7630305-2 (Version None)
Quarter: 2011Q3

REPORT INFORMATION
  Report Type: 
  Country: None (occurrence: None)
  Receive Date: 20110722
  Receipt Date: 20110720
  Transmission Date: 20111222
  Serious: Yes (Death, Hospitalization, Other)
  Sender: FDA-Public Use
  Company Number: PHHY2011DK64985

PATIENT
  Age: 15 Year
  Sex: Female

DRUGS (1)
  1. GESTODENE AND ETHINYL ESTRADIOL [Suspect]
     Dosage: UNK
     Route: 048
     Dates: start: 20101201

REACTIONS (10)
  - DYSPNOEA [None]
  - CARDIAC ARREST [None]
  - MALAISE [None]
  - OROPHARYNGEAL PAIN [None]
  - PULMONARY EMBOLISM [None]
  - CIRCULATORY COLLAPSE [None]
  - VOMITING [None]
  - BACK PAIN [None]
  - PAIN IN EXTREMITY [None]
  - CHEST PAIN [None]
